FAERS Safety Report 9665558 (Version 1)
Quarter: 2013Q4

REPORT INFORMATION
  Report Type: Spontaneous
  Country: US (occurrence: None)
  Receive Date: 20131101
  Receipt Date: 20131101
  Transmission Date: 20140711
  Serious: No
  Sender: FDA-Public Use
  Company Number: None

PATIENT
  Age: 21 Year
  Sex: Female
  Weight: 77.11 kg

DRUGS (1)
  1. NEXPLANON [Suspect]

REACTIONS (15)
  - Pain in extremity [None]
  - Dyspnoea [None]
  - Hypoaesthesia [None]
  - Hypoaesthesia [None]
  - Chest pain [None]
  - Swollen tongue [None]
  - Pharyngeal oedema [None]
  - Mood swings [None]
  - Depression [None]
  - Abdominal pain lower [None]
  - Haemorrhage [None]
  - Menorrhagia [None]
  - Feeling abnormal [None]
  - Vulvovaginal pain [None]
  - Weight increased [None]
